FAERS Safety Report 9639854 (Version 1)
Quarter: 2013Q4

REPORT INFORMATION
  Report Type: Spontaneous
  Country: US (occurrence: None)
  Receive Date: 20131021
  Receipt Date: 20131021
  Transmission Date: 20140711
  Serious: No
  Sender: FDA-Public Use
  Company Number: None

PATIENT
  Age: 61 Year
  Sex: Female

DRUGS (2)
  1. CIPROFLOXACIN [Suspect]
     Indication: PROPHYLAXIS
     Dosage: 1 PILL TWICE DAILY TAKEN BY MOUTH
     Dates: start: 20130419, end: 20130429
  2. CIPROFLOXACIN [Suspect]
     Indication: INFECTION
     Dosage: 1 PILL TWICE DAILY TAKEN BY MOUTH
     Dates: start: 20130419, end: 20130429

REACTIONS (5)
  - Refusal of treatment by patient [None]
  - Dizziness [None]
  - Rash [None]
  - Tendon pain [None]
  - Tendon disorder [None]
